FAERS Safety Report 4413645-X (Version None)
Quarter: 2004Q2

REPORT INFORMATION
  Report Type: 
  Country: None (occurrence: None)
  Receive Date: 20040630
  Receipt Date: 20040430
  Transmission Date: 20050107
  Serious: No
  Sender: FDA-Public Use
  Company Number: 04P-163-0259775-00

PATIENT

DRUGS (1)
  1. HUMIRA [Suspect]

REACTIONS (1)
  - INJECTION SITE HAEMORRHAGE [None]
